FAERS Safety Report 7004633-8 (Version None)
Quarter: 2010Q3

REPORT INFORMATION
  Report Type: 
  Country: None (occurrence: None)
  Receive Date: 20100921
  Receipt Date: 20100914
  Transmission Date: 20110219
  Serious: Yes (Other)
  Sender: FDA-Public Use
  Company Number: US-ASTRAZENECA-2007UW24128

PATIENT
  Age: 19191 Day
  Sex: Male
  Weight: 99.3 kg

DRUGS (24)
  1. SEROQUEL [Suspect]
     Indication: HALLUCINATION, AUDITORY
     Dosage: 25-300 MG
     Route: 048
     Dates: start: 19980821, end: 20070913
  2. SEROQUEL [Suspect]
     Indication: SCHIZOPHRENIA
     Dosage: 25-300 MG
     Route: 048
     Dates: start: 19980821, end: 20070913
  3. SEROQUEL [Suspect]
     Indication: DEPRESSION
     Dosage: 25-300 MG
     Route: 048
     Dates: start: 19980821, end: 20070913
  4. SEROQUEL [Suspect]
     Dosage: 300 MG TAKE ONE TABLET BY MOUTH AT BEDTIME
     Route: 048
     Dates: start: 20000317
  5. SEROQUEL [Suspect]
     Dosage: 300 MG TAKE ONE TABLET BY MOUTH AT BEDTIME
     Route: 048
     Dates: start: 20000317
  6. SEROQUEL [Suspect]
     Dosage: 300 MG TAKE ONE TABLET BY MOUTH AT BEDTIME
     Route: 048
     Dates: start: 20000317
  7. SEROQUEL [Suspect]
     Route: 048
     Dates: start: 20070212
  8. SEROQUEL [Suspect]
     Route: 048
     Dates: start: 20070212
  9. SEROQUEL [Suspect]
     Route: 048
     Dates: start: 20070212
  10. SIMVASTATIN [Concomitant]
     Indication: BLOOD CHOLESTEROL
     Dosage: 20-40 MG TABLET TAKE HALF TABLET AT BEDTIME
     Route: 048
     Dates: start: 20020408
  11. PAXIL [Concomitant]
     Indication: ANGER
     Dates: start: 20000317
  12. TEMAZEPAM [Concomitant]
     Indication: SLEEP DISORDER
     Route: 048
  13. GEMFIBROZIL [Concomitant]
     Indication: BLOOD CHOLESTEROL
     Dosage: 600 MG TAKE ONE TABLET BY MOUTH TWICE A DAY
     Route: 048
     Dates: start: 20021209
  14. METFORMIN [Concomitant]
     Indication: DIABETES MELLITUS
     Dosage: 850 MG TABLET TAKE ONE TABLET BY MOUTH TWICE A DAY
     Route: 048
     Dates: start: 20021209
  15. OMEPRAZOLE [Concomitant]
     Dates: start: 20070212
  16. ZOLOFT [Concomitant]
     Indication: DEPRESSION
     Dates: start: 19980804
  17. INSULIN [Concomitant]
     Indication: TYPE 1 DIABETES MELLITUS
     Dates: start: 20090301
  18. TRAMADOL [Concomitant]
     Indication: PAIN
     Dosage: TWO TABLETS EVERY 6 HRS PRN
     Dates: start: 20090301
  19. TRAMADOL [Concomitant]
     Dates: start: 20070212
  20. CELEBREX [Concomitant]
     Dates: start: 20070212
  21. HYDROCODONE BITARTRATE AND ACETAMINOPHEN [Concomitant]
     Dosage: 7.5-750
     Dates: start: 20090701
  22. LUNESTA [Concomitant]
     Indication: INSOMNIA
     Dates: start: 20050622
  23. RISPERDAL [Concomitant]
     Indication: SCHIZOPHRENIA
     Dosage: 1-2 MG
     Dates: start: 19980727, end: 19980804
  24. ABILIFY [Concomitant]
     Dates: start: 20040101

REACTIONS (10)
  - ABDOMINAL PAIN [None]
  - BLOOD CHOLESTEROL INCREASED [None]
  - DIABETES MELLITUS INADEQUATE CONTROL [None]
  - DIABETIC NEUROPATHY [None]
  - HYPERLIPIDAEMIA [None]
  - MUSCULOSKELETAL PAIN [None]
  - OBESITY [None]
  - PAIN IN EXTREMITY [None]
  - TYPE 2 DIABETES MELLITUS [None]
  - WEIGHT INCREASED [None]
